APPROVED DRUG PRODUCT: CALDOLOR
Active Ingredient: IBUPROFEN
Strength: 800MG/200ML (4MG/ML)
Dosage Form/Route: SOLUTION;INTRAVENOUS
Application: N022348 | Product #003
Applicant: CUMBERLAND PHARMACEUTICALS INC
Approved: Jan 25, 2019 | RLD: Yes | RS: Yes | Type: RX

PATENTS:
Patent 9072661 | Expires: Mar 16, 2032
Patent 8871810 | Expires: Sep 30, 2029
Patent 9012508 | Expires: Sep 14, 2030
Patent 8735452 | Expires: Sep 30, 2029
Patent 9072710 | Expires: Mar 16, 2032
Patent 11806400 | Expires: Mar 16, 2032

EXCLUSIVITY:
Code: NPP | Date: May 11, 2026